FAERS Safety Report 23796930 (Version 2)
Quarter: 2024Q2

REPORT INFORMATION
  Report Type: Spontaneous
  Country: AU (occurrence: AU)
  Receive Date: 20240430
  Receipt Date: 20240528
  Transmission Date: 20240716
  Serious: Yes (Death, Hospitalization)
  Sender: FDA-Public Use
  Company Number: AU-CIPLA LTD.-2024AU04289

PATIENT

DRUGS (25)
  1. TERBINAFINE [Suspect]
     Active Substance: TERBINAFINE
     Indication: Mycotic endophthalmitis
     Dosage: 250 MILLIGRAM, BID
     Route: 065
  2. TERBINAFINE [Suspect]
     Active Substance: TERBINAFINE
     Indication: Scedosporium infection
     Dosage: UNK
     Route: 065
  3. TERBINAFINE [Suspect]
     Active Substance: TERBINAFINE
     Dosage: UNK
     Route: 065
  4. VORICONAZOLE [Suspect]
     Active Substance: VORICONAZOLE
     Indication: Mycotic endophthalmitis
     Dosage: 200 MILLIGRAM, BID
     Route: 048
  5. VORICONAZOLE [Suspect]
     Active Substance: VORICONAZOLE
     Indication: Scedosporium infection
     Dosage: 250 MILLIGRAM, BID
     Route: 048
  6. VORICONAZOLE [Suspect]
     Active Substance: VORICONAZOLE
     Dosage: UNK,  RESTARTED; ORAL USE
     Route: 048
  7. VORICONAZOLE [Suspect]
     Active Substance: VORICONAZOLE
     Dosage: UNK
  8. VORICONAZOLE [Suspect]
     Active Substance: VORICONAZOLE
     Dosage: UNK,100 ?G/0.1ML
  9. VORICONAZOLE [Suspect]
     Active Substance: VORICONAZOLE
     Dosage: UNK, TWO FURTHER DOSES INTRAVITREAL VORICONAZOLE; UNKNOWN INTRAVITREAL USE
  10. VORICONAZOLE [Suspect]
     Active Substance: VORICONAZOLE
     Dosage: UNK,100 ?G/0.1ML
  11. CASPOFUNGIN [Suspect]
     Active Substance: CASPOFUNGIN
     Indication: Mycotic endophthalmitis
     Dosage: UNK, 100??G/0.1ML
     Route: 031
  12. CASPOFUNGIN [Suspect]
     Active Substance: CASPOFUNGIN
     Indication: Scedosporium infection
     Dosage: UNK, 100??G/0.1ML
     Route: 031
  13. AMPHOTERICIN B [Suspect]
     Active Substance: AMPHOTERICIN B
     Indication: Mycotic endophthalmitis
     Dosage: UNK,10??G/0.1ML
     Route: 031
  14. AMPHOTERICIN B [Suspect]
     Active Substance: AMPHOTERICIN B
     Indication: Scedosporium infection
  15. OLOROFIM [Suspect]
     Active Substance: OLOROFIM
     Indication: Mycotic endophthalmitis
     Dosage: 150 MILLIGRAM, QD, LOADING DOSE
     Route: 065
  16. OLOROFIM [Suspect]
     Active Substance: OLOROFIM
     Indication: Scedosporium infection
     Dosage: 90 MILLIGRAM, BID
     Route: 065
  17. OLOROFIM [Suspect]
     Active Substance: OLOROFIM
     Dosage: UNK
     Route: 065
  18. TACROLIMUS [Concomitant]
     Active Substance: TACROLIMUS
     Indication: Immunosuppressant drug therapy
     Dosage: UNK
     Route: 065
  19. MICAFUNGIN [Concomitant]
     Active Substance: MICAFUNGIN SODIUM
     Indication: Product used for unknown indication
     Dosage: UNK
     Route: 065
  20. VALGANCICLOVIR [Concomitant]
     Active Substance: VALGANCICLOVIR
     Indication: Product used for unknown indication
     Dosage: UNK
     Route: 065
  21. SULFAMETHOXAZOLE\TRIMETHOPRIM [Concomitant]
     Active Substance: SULFAMETHOXAZOLE\TRIMETHOPRIM
     Indication: Product used for unknown indication
     Dosage: UNK
     Route: 065
  22. VANCOMYCIN [Concomitant]
     Active Substance: VANCOMYCIN
     Indication: Product used for unknown indication
     Dosage: UNK
     Route: 065
  23. CEFTAZIDIME [Concomitant]
     Active Substance: CEFTAZIDIME
     Indication: Product used for unknown indication
     Dosage: UNK
     Route: 065
  24. FOSCARNET [Concomitant]
     Active Substance: FOSCARNET
     Indication: Product used for unknown indication
     Dosage: UNK
     Route: 065
  25. DIMETHICONE [Concomitant]
     Active Substance: DIMETHICONE
     Indication: Product used for unknown indication
     Dosage: UNK
     Route: 065

REACTIONS (2)
  - Drug ineffective [Fatal]
  - Off label use [Fatal]
